FAERS Safety Report 7164650-4 (Version None)
Quarter: 2010Q4

REPORT INFORMATION
  Report Type: 
  Country: None (occurrence: None)
  Receive Date: 20101215
  Receipt Date: 20101207
  Transmission Date: 20110411
  Serious: Yes (Hospitalization)
  Sender: FDA-Public Use
  Company Number: US-NOVOPROD-314485

PATIENT
  Sex: Male

DRUGS (19)
  1. VICTOZA [Suspect]
     Indication: TYPE 2 DIABETES MELLITUS
     Dosage: 0.6 MG, QD
     Route: 058
     Dates: start: 20100701, end: 20100701
  2. VICTOZA [Suspect]
     Dosage: 1.2 MG, QD
     Route: 058
     Dates: start: 20100701, end: 20100701
  3. VICTOZA [Suspect]
     Dosage: 1.8 MG, QD
     Route: 058
     Dates: start: 20100701, end: 20100823
  4. LIPITOR [Concomitant]
     Indication: HYPERCHOLESTEROLAEMIA
     Dosage: 10 MG, QD AT BEDTIME
     Route: 048
     Dates: start: 20100202
  5. HUMULIN N [Concomitant]
     Indication: PRODUCT USED FOR UNKNOWN INDICATION
     Dosage: 75 U, BID
     Route: 058
     Dates: start: 20101129
  6. VALIUM [Concomitant]
     Indication: PRODUCT USED FOR UNKNOWN INDICATION
     Dosage: 5 MG, TID, PRN ANXIETY
     Route: 048
     Dates: start: 20101021
  7. SEROQUEL XR [Concomitant]
     Indication: PRODUCT USED FOR UNKNOWN INDICATION
     Dosage: 400 MG, QD AT BEDTIME
     Route: 048
     Dates: start: 20100323
  8. BENICAR HCT [Concomitant]
     Indication: PRODUCT USED FOR UNKNOWN INDICATION
     Dosage: UNK
     Route: 048
     Dates: start: 20100202
  9. ZOLOFT [Concomitant]
     Indication: PRODUCT USED FOR UNKNOWN INDICATION
     Dosage: 100 MG, QD AM
     Route: 048
     Dates: start: 20091223
  10. HUMALOG [Concomitant]
     Indication: DIABETES MELLITUS
     Dosage: UNK
     Route: 058
     Dates: start: 20091223
  11. SINGULAIR [Concomitant]
     Indication: PRODUCT USED FOR UNKNOWN INDICATION
     Dosage: 10 MG, QD
     Route: 048
  12. REGULAR INSULIN [Concomitant]
     Indication: TYPE 2 DIABETES MELLITUS
     Dosage: SLIDING SCALE
     Route: 058
  13. VENTOLIN [Concomitant]
     Dosage: 2 PUFF, PRN
     Route: 055
  14. ALLEGRA [Concomitant]
     Dosage: 180 MG, QD
     Route: 048
  15. ASTELIN [Concomitant]
     Dosage: 2 PUFF, BID
     Route: 055
  16. ZANAFLEX [Concomitant]
     Dosage: 4 MG, 1-2 TABS Q6 HOURS
     Route: 048
  17. OXYCODONE [Concomitant]
     Dosage: 15 MG, Q6H PRN PAIN
     Route: 048
  18. FOLIC ACID [Concomitant]
     Dosage: 1 MG, QD
     Route: 048
  19. ANDROGEL [Concomitant]
     Dosage: 5 G, QD
     Route: 061

REACTIONS (1)
  - PANCREATITIS ACUTE [None]
